FAERS Safety Report 13383284 (Version 1)
Quarter: 2017Q1

REPORT INFORMATION
  Report Type: Spontaneous
  Country: US (occurrence: US)
  Receive Date: 20170329
  Receipt Date: 20170329
  Transmission Date: 20170429
  Serious: No
  Sender: FDA-Public Use
  Company Number: US-RISING PHARMACEUTICALS, INC.-2017RIS00033

PATIENT
  Age: 69 Year
  Sex: Male
  Weight: 80.73 kg

DRUGS (8)
  1. OMEPRAZOLE. [Concomitant]
     Active Substance: OMEPRAZOLE
  2. LOSARTAN. [Concomitant]
     Active Substance: LOSARTAN
  3. POTASSIUM [Concomitant]
     Active Substance: POTASSIUM
  4. XARELTO [Concomitant]
     Active Substance: RIVAROXABAN
  5. AMLODIPINE BESYLATE. [Concomitant]
     Active Substance: AMLODIPINE BESYLATE
  6. OFLOXACIN. [Suspect]
     Active Substance: OFLOXACIN
     Indication: EAR INFECTION
     Dosage: 1 GTT, 4X/DAY LEFT EAR
     Dates: start: 20170222
  7. VITAMIN D [Concomitant]
     Active Substance: CHOLECALCIFEROL
  8. PROVENTIL [Concomitant]
     Active Substance: ALBUTEROL

REACTIONS (4)
  - Drug ineffective for unapproved indication [Not Recovered/Not Resolved]
  - Off label use [Not Recovered/Not Resolved]
  - Ear congestion [Not Recovered/Not Resolved]
  - Ear swelling [Not Recovered/Not Resolved]

NARRATIVE: CASE EVENT DATE: 20170222
